FAERS Safety Report 10335478 (Version 1)
Quarter: 2014Q3

REPORT INFORMATION
  Report Type: Spontaneous
  Country: US (occurrence: US)
  Receive Date: 20140723
  Receipt Date: 20140723
  Transmission Date: 20150326
  Serious: No
  Sender: FDA-Public Use
  Company Number: US-UNITED THERAPEUTICS-UTC-047613

PATIENT
  Sex: Female
  Weight: 90.71 kg

DRUGS (3)
  1. REMODULIN [Suspect]
     Active Substance: TREPROSTINIL
     Dosage: 0.073 UG/KG/MIN
     Route: 058
     Dates: start: 20100927
  2. ADCIRCA [Concomitant]
     Active Substance: TADALAFIL
  3. COUMADIN [Concomitant]
     Active Substance: WARFARIN SODIUM

REACTIONS (4)
  - Bronchitis [Unknown]
  - Sinusitis [Unknown]
  - Vomiting [Unknown]
  - Ear infection [Unknown]
